FAERS Safety Report 7760272-2 (Version None)
Quarter: 2011Q3

REPORT INFORMATION
  Report Type: 
  Country: None (occurrence: None)
  Receive Date: 20110919
  Receipt Date: 20110914
  Transmission Date: 20111222
  Serious: Yes (Other)
  Sender: FDA-Public Use
  Company Number: DE-GLAXOSMITHKLINE-D0072732A

PATIENT
  Sex: Male

DRUGS (2)
  1. TROBALT [Suspect]
     Route: 048
  2. OTHER MEDICATIONS [Concomitant]
     Route: 065

REACTIONS (1)
  - EPILEPSY [None]
